FAERS Safety Report 8848902 (Version 1)
Quarter: 2012Q4

REPORT INFORMATION
  Report Type: Spontaneous
  Country: US (occurrence: None)
  Receive Date: 20121017
  Receipt Date: 20121017
  Transmission Date: 20130627
  Serious: Yes (Other)
  Sender: FDA-Public Use
  Company Number: None

PATIENT
  Age: 74 Year
  Sex: Female

DRUGS (1)
  1. LIOTHYRONINE [Suspect]
     Dosage: 180 TABLETS   2 TABLETS-DAILY PO
     Route: 048
     Dates: start: 20120910, end: 20121016

REACTIONS (2)
  - Drug level increased [None]
  - Product quality issue [None]
